FAERS Safety Report 5914475-X (Version None)
Quarter: 2008Q4

REPORT INFORMATION
  Report Type: 
  Country: None (occurrence: None)
  Receive Date: 20081007
  Receipt Date: 20080925
  Transmission Date: 20090506
  Serious: Yes (Other)
  Sender: FDA-Public Use
  Company Number: 2008090043

PATIENT
  Age: 65 Year
  Sex: Male

DRUGS (2)
  1. ASTELIN [Suspect]
     Indication: EUSTACHIAN TUBE DYSFUNCTION
     Dosage: IN
     Route: 055
     Dates: start: 20080801, end: 20080801
  2. COUMADIN [Suspect]
     Indication: ANTICOAGULANT THERAPY
     Dosage: ORAL
     Route: 048
     Dates: start: 20040101

REACTIONS (1)
  - PROTHROMBIN TIME PROLONGED [None]
